FAERS Safety Report 14480422 (Version 1)
Quarter: 2018Q1

REPORT INFORMATION
  Report Type: Spontaneous
  Country: US (occurrence: US)
  Receive Date: 20180202
  Receipt Date: 20180202
  Transmission Date: 20180509
  Serious: Yes (Other)
  Sender: FDA-Public Use
  Company Number: US-PFIZER INC-2018045450

PATIENT
  Age: 52 Year
  Sex: Male
  Weight: 66.22 kg

DRUGS (2)
  1. BACLOFEN. [Concomitant]
     Active Substance: BACLOFEN
     Indication: SPINAL CORD INJURY
     Dosage: TAKE A PIECE OF ONE, MAYBE 3 MG TWO TO THREE TIMES A DAY WEEK
     Dates: start: 200706
  2. LYRICA [Suspect]
     Active Substance: PREGABALIN
     Indication: SPINAL CORD INJURY
     Dosage: 100MG CAPSULE TWO TO THREE TIMES A DAY
     Route: 048
     Dates: start: 200706

REACTIONS (8)
  - Hyperhidrosis [Unknown]
  - Nervousness [Unknown]
  - Malaise [Unknown]
  - Gait disturbance [Unknown]
  - Musculoskeletal stiffness [Unknown]
  - Drug dose omission [Unknown]
  - Intentional product misuse [Unknown]
  - Upper limb fracture [Unknown]

NARRATIVE: CASE EVENT DATE: 2017
